FAERS Safety Report 12651120 (Version 1)
Quarter: 2016Q3

REPORT INFORMATION
  Report Type: Spontaneous
  Country: US (occurrence: None)
  Receive Date: 20160812
  Receipt Date: 20160812
  Transmission Date: 20161109
  Serious: Yes (Other)
  Sender: FDA-Public Use
  Company Number: None

PATIENT
  Age: 66 Year
  Sex: Female

DRUGS (12)
  1. CLONAZEPAM. [Concomitant]
     Active Substance: CLONAZEPAM
  2. VITAMIN D [Concomitant]
     Active Substance: CHOLECALCIFEROL
  3. VESICARE [Concomitant]
     Active Substance: SOLIFENACIN SUCCINATE
  4. VITAMIN C [Concomitant]
     Active Substance: ASCORBIC ACID
  5. CYMBALTA [Concomitant]
     Active Substance: DULOXETINE HYDROCHLORIDE
  6. FOSAMAX [Concomitant]
     Active Substance: ALENDRONATE SODIUM
  7. COPAXONE [Suspect]
     Active Substance: GLATIRAMER ACETATE
     Indication: MULTIPLE SCLEROSIS
     Dosage: 40MG 3XN SQ
     Route: 058
     Dates: start: 20150810
  8. XARELTO [Concomitant]
     Active Substance: RIVAROXABAN
  9. GLUCOS [Concomitant]
  10. SYNTHROID [Concomitant]
     Active Substance: LEVOTHYROXINE SODIUM
  11. FISH OIL [Concomitant]
     Active Substance: FISH OIL
  12. LYRICA [Concomitant]
     Active Substance: PREGABALIN

REACTIONS (2)
  - Surgery [None]
  - Pulmonary embolism [None]

NARRATIVE: CASE EVENT DATE: 201608
